FAERS Safety Report 4603299-1 (Version None)
Quarter: 2005Q2

REPORT INFORMATION
  Report Type: 
  Country: None (occurrence: None)
  Receive Date: 20050223
  Receipt Date: 20040219
  Transmission Date: 20051028
  Serious: Yes (Other)
  Sender: FDA-Public Use
  Company Number: PHEH2004US02245

PATIENT
  Age: 46 Year
  Sex: Male

DRUGS (1)
  1. DIOVAN [Suspect]
     Dosage: 160 MG, BID ; 80 MG, QOD   : ORAL
     Route: 048

REACTIONS (1)
  - BLOOD CREATININE INCREASED [None]
